FAERS Safety Report 6359496-0 (Version None)
Quarter: 2009Q3

REPORT INFORMATION
  Report Type: 
  Country: None (occurrence: None)
  Receive Date: 20090917
  Receipt Date: 20090910
  Transmission Date: 20100115
  Serious: Yes (Other)
  Sender: FDA-Public Use
  Company Number: US-ABBOTT-09P-163-0596468-00

PATIENT
  Sex: Male
  Weight: 68.1 kg

DRUGS (11)
  1. HUMIRA [Suspect]
     Indication: DRUG USE FOR UNKNOWN INDICATION
     Route: 058
     Dates: start: 20080221, end: 20090318
  2. HUMIRA [Suspect]
     Route: 058
     Dates: start: 20070910, end: 20080221
  3. METHOTREXATE [Suspect]
     Indication: PSORIASIS
  4. METHOTREXATE [Suspect]
  5. FOLIC ACID [Concomitant]
     Indication: DRUG USE FOR UNKNOWN INDICATION
  6. SYNTHROID [Concomitant]
     Indication: DRUG USE FOR UNKNOWN INDICATION
  7. FLOMAX [Concomitant]
     Indication: DRUG USE FOR UNKNOWN INDICATION
  8. ARICEPT [Concomitant]
     Indication: DRUG USE FOR UNKNOWN INDICATION
  9. CELLCEPT [Concomitant]
     Indication: DRUG USE FOR UNKNOWN INDICATION
     Dosage: RECEIVED ONLY 1 INJECTION
     Route: 050
  10. ACUTRIM [Concomitant]
     Indication: DRUG USE FOR UNKNOWN INDICATION
  11. CYMPONI [Concomitant]
     Indication: PSORIASIS
     Dosage: RECEIVED 1 INJECTION
     Route: 050
     Dates: start: 20090701, end: 20090701

REACTIONS (5)
  - FATIGUE [None]
  - OEDEMA PERIPHERAL [None]
  - SQUAMOUS CELL CARCINOMA [None]
  - T-CELL LYMPHOMA [None]
  - WEIGHT DECREASED [None]
